FAERS Safety Report 12371427 (Version 4)
Quarter: 2016Q3

REPORT INFORMATION
  Report Type: Spontaneous
  Country: US (occurrence: US)
  Receive Date: 20160516
  Receipt Date: 20160818
  Transmission Date: 20161109
  Serious: Yes (Hospitalization, Other)
  Sender: FDA-Public Use
  Company Number: US-ASTELLAS-2016US017312

PATIENT
  Age: 70 Year
  Sex: Male

DRUGS (3)
  1. XTANDI [Suspect]
     Active Substance: ENZALUTAMIDE
     Indication: METASTASES TO LIVER
     Route: 048
     Dates: start: 20160504
  2. XTANDI [Suspect]
     Active Substance: ENZALUTAMIDE
     Indication: PROSTATIC SPECIFIC ANTIGEN INCREASED
  3. XTANDI [Suspect]
     Active Substance: ENZALUTAMIDE
     Indication: PROSTATE CANCER METASTATIC
     Route: 048
     Dates: start: 20160317, end: 20160430

REACTIONS (17)
  - Feeling abnormal [Unknown]
  - Vomiting [Unknown]
  - Fatigue [Unknown]
  - Urinary incontinence [Unknown]
  - Nausea [Unknown]
  - Decreased appetite [Unknown]
  - Proteus infection [Unknown]
  - Localised infection [Unknown]
  - Asthenia [Unknown]
  - Pyrexia [Unknown]
  - Confusional state [Unknown]
  - Retching [Unknown]
  - Bacteraemia [Unknown]
  - Disorientation [Unknown]
  - Bacterial infection [Unknown]
  - Sepsis [Unknown]
  - Foot deformity [Unknown]

NARRATIVE: CASE EVENT DATE: 20160324
